FAERS Safety Report 8708548 (Version 1)
Quarter: 2012Q4

REPORT INFORMATION
  Report Type: Report from Study
  Country: JP (occurrence: JP)
  Receive Date: 20120806
  Receipt Date: 20121031
  Transmission Date: 20130627
  Serious: Yes (Life-Threatening, Hospitalization, Other)
  Sender: FDA-Public Use
  Company Number: JP-NAPPMUNDI-MAG-2012-0002250

PATIENT
  Age: 80 Year
  Sex: Male

DRUGS (25)
  1. OXYCODONE HCL [Suspect]
     Indication: CANCER PAIN
     Dosage: 40 mg, daily
     Route: 048
     Dates: start: 20110505, end: 20110507
  2. OXYCODONE HCL [Suspect]
     Dosage: 60 mg, daily
     Route: 048
     Dates: start: 20110507, end: 20110510
  3. OXYCODONE HCL [Suspect]
     Dosage: 40 mg, daily
     Route: 048
     Dates: start: 20110510, end: 20110512
  4. LOXONIN [Suspect]
     Indication: CANCER PAIN
     Dosage: 60 mg, daily
     Route: 048
     Dates: start: 20110507, end: 20110510
  5. LOXONIN [Suspect]
     Dosage: UNK UNK, daily
     Route: 048
     Dates: end: 20110510
  6. VOLTAREN                           /00372301/ [Suspect]
     Indication: CANCER PAIN
     Dosage: UNK
     Route: 051
     Dates: end: 20110510
  7. FENTOS [Concomitant]
     Indication: CANCER PAIN
     Dosage: 3 mg, daily
     Route: 062
     Dates: start: 20110415, end: 20110505
  8. FENTOS [Concomitant]
     Dosage: 1 mg, daily
     Dates: start: 20110505, end: 20110509
  9. MORPHINE                           /00036303/ [Concomitant]
     Indication: CANCER PAIN
     Dosage: 10 mg, daily
     Route: 048
     Dates: start: 20110427, end: 20110427
  10. MORPHINE                           /00036303/ [Concomitant]
     Dosage: 10 mg, daily
     Route: 048
     Dates: start: 20110507, end: 20110507
  11. MORPHINE                           /00036303/ [Concomitant]
     Dosage: 10 mg, daily
     Route: 048
     Dates: start: 20110509, end: 20110509
  12. ACETAMINOPHEN [Concomitant]
     Indication: CANCER PAIN
  13. MAGMITT [Concomitant]
     Route: 048
  14. OPALMON [Concomitant]
     Dosage: UNK
     Dates: end: 20110512
  15. LASIX                              /00032601/ [Concomitant]
     Dosage: UNK
     Route: 048
     Dates: end: 20110512
  16. PREDONINE                          /00016201/ [Concomitant]
     Dosage: UNK
     Route: 048
     Dates: end: 20110512
  17. PARIET [Concomitant]
     Dosage: UNK
     Route: 048
     Dates: end: 20110512
  18. MYSLEE [Concomitant]
     Dosage: UNK
     Route: 048
  19. AZULFIDINE EN [Concomitant]
     Dosage: UNK
     Route: 048
  20. BROVARIN [Concomitant]
     Dosage: UNK
     Route: 048
  21. CELECOX [Concomitant]
     Indication: CANCER PAIN
     Dosage: UNK
     Route: 048
  22. GLUCOSE [Concomitant]
     Indication: RENAL IMPAIRMENT
     Dosage: UNK
     Dates: start: 20110510
  23. GLUCOSE [Concomitant]
     Indication: SOMNOLENCE
  24. NOVOLIN R [Concomitant]
     Indication: RENAL IMPAIRMENT
     Dosage: UNK
     Dates: start: 20110510
  25. NOVOLIN R [Concomitant]
     Indication: SOMNOLENCE

REACTIONS (4)
  - Productive cough [Recovering/Resolving]
  - Somnolence [Recovering/Resolving]
  - Confusional state [Recovering/Resolving]
  - Renal impairment [Recovered/Resolved]
